FAERS Safety Report 11791419 (Version 2)
Quarter: 2016Q1

REPORT INFORMATION
  Report Type: Spontaneous
  Country: US (occurrence: US)
  Receive Date: 20151201
  Receipt Date: 20160210
  Transmission Date: 20160525
  Serious: Yes (Hospitalization, Other)
  Sender: FDA-Public Use
  Company Number: US-GLAXOSMITHKLINE-US2015GSK170751

PATIENT
  Age: 64 Year
  Sex: Female

DRUGS (1)
  1. COREG [Suspect]
     Active Substance: CARVEDILOL
     Indication: DIABETES MELLITUS
     Dosage: 10 MG, UNK

REACTIONS (5)
  - Hospitalisation [Unknown]
  - Off label use [Unknown]
  - Localised infection [Unknown]
  - Emergency care [Unknown]
  - Expired product administered [Unknown]

NARRATIVE: CASE EVENT DATE: 20151124
